FAERS Safety Report 9419824 (Version 2)
Quarter: 2013Q3

REPORT INFORMATION
  Report Type: Spontaneous
  Country: US (occurrence: None)
  Receive Date: 20130723
  Receipt Date: 20130910
  Transmission Date: 20140515
  Serious: Yes (Other)
  Sender: FDA-Public Use
  Company Number: IPC201307-000269

PATIENT
  Age: 66 Year
  Sex: Female
  Weight: 63.5 kg

DRUGS (3)
  1. METOPROLOL TARTRATE [Suspect]
     Dates: start: 2009, end: 2009
  2. ATENOLOL [Suspect]
     Indication: BLOOD PRESSURE
     Dates: start: 2009, end: 20130702
  3. PROPRANOLOL HYDROCHLORIDE [Suspect]
     Dates: start: 2009, end: 2009

REACTIONS (1)
  - Anaphylactic reaction [None]
